FAERS Safety Report 8120153-1 (Version None)
Quarter: 2012Q1

REPORT INFORMATION
  Report Type: 
  Country: None (occurrence: None)
  Receive Date: 20120207
  Receipt Date: 20120109
  Transmission Date: 20120608
  Serious: Yes (Hospitalization, Other)
  Sender: FDA-Public Use
  Company Number: US-BAYER-2011-027515

PATIENT
  Age: 26 Year
  Sex: Female
  Weight: 88.435 kg

DRUGS (13)
  1. YAZ [Suspect]
     Dosage: UNK
     Route: 048
     Dates: start: 20070101, end: 20100101
  2. DIAZEPAM [Concomitant]
  3. RANITIDINE [Concomitant]
     Dosage: 300 MG, QD
     Dates: start: 20091101
  4. FENOFIBRATE [Concomitant]
     Indication: HYPERTRIGLYCERIDAEMIA
     Dosage: 160 MG, QD
     Dates: start: 20090629
  5. VICODIN [Concomitant]
     Dosage: 500MG-5MG EVERY 4 HOURS
     Dates: start: 20090601
  6. AZITHROMYCIN [Concomitant]
     Dosage: UNK
     Dates: start: 20090903
  7. MAGNESIUM HYDROXIDE TAB [Concomitant]
  8. SERTRALINE HYDROCHLORIDE [Concomitant]
     Dosage: 50MG - 100MG ONCE A DAY
     Dates: start: 20090401
  9. ANTIVERT [Concomitant]
     Dosage: 12.5 MG, TID
     Dates: start: 20090701
  10. EXCEDRIN [CAFFEINE,PARACETAMOL] [Concomitant]
     Route: 048
  11. ZETIA [Concomitant]
     Indication: HYPERTRIGLYCERIDAEMIA
     Dosage: 10 MG, QD
     Dates: start: 20090516, end: 20090629
  12. VITAMIN TAB [Concomitant]
     Route: 048
  13. NIASPAN [Concomitant]
     Indication: HYPERLIPIDAEMIA

REACTIONS (10)
  - BILIARY COLIC [None]
  - BILE DUCT STONE [None]
  - GENERAL PHYSICAL HEALTH DETERIORATION [None]
  - ANXIETY [None]
  - ANHEDONIA [None]
  - JAUNDICE [None]
  - INJURY [None]
  - CHOLECYSTITIS CHRONIC [None]
  - PAIN [None]
  - EMOTIONAL DISTRESS [None]
